FAERS Safety Report 22297634 (Version 1)
Quarter: 2023Q2

REPORT INFORMATION
  Report Type: Spontaneous
  Country: US (occurrence: US)
  Receive Date: 20230509
  Receipt Date: 20230509
  Transmission Date: 20230722
  Serious: No
  Sender: FDA-Public Use
  Company Number: US-ABBVIE-4752043

PATIENT
  Age: 64 Year
  Sex: Female
  Weight: 83.007 kg

DRUGS (4)
  1. RINVOQ [Suspect]
     Active Substance: UPADACITINIB
     Indication: Rheumatoid arthritis
     Dosage: FORM STRENGTH: 15 MG
     Route: 048
     Dates: start: 20221003, end: 20230410
  2. PREMARIN [Concomitant]
     Active Substance: ESTROGENS, CONJUGATED
     Indication: Blood oestrogen
  3. SYNTHROID [Concomitant]
     Active Substance: LEVOTHYROXINE SODIUM
     Indication: Hypothyroidism
  4. LOSARTAN [Concomitant]
     Active Substance: LOSARTAN
     Indication: Cardiac disorder

REACTIONS (1)
  - Blood triglycerides increased [Unknown]

NARRATIVE: CASE EVENT DATE: 20230301
